FAERS Safety Report 18497270 (Version 2)
Quarter: 2020Q4

REPORT INFORMATION
  Report Type: Spontaneous
  Country: CH (occurrence: CH)
  Receive Date: 20201112
  Receipt Date: 20201113
  Transmission Date: 20210114
  Serious: Yes (Other)
  Sender: FDA-Public Use
  Company Number: CH-FRESENIUS KABI-FK202011943

PATIENT

DRUGS (1)
  1. REMIFENTANIL KABI (NOT SPECIFIED) [Suspect]
     Active Substance: REMIFENTANIL HYDROCHLORIDE
     Indication: ANAESTHESIA
     Route: 065

REACTIONS (2)
  - Delayed recovery from anaesthesia [Recovered/Resolved]
  - Accidental overdose [Recovered/Resolved]
